FAERS Safety Report 8673641 (Version 2)
Quarter: 2012Q4

REPORT INFORMATION
  Report Type: 
  Country: US (occurrence: US)
  Receive Date: 20120719
  Receipt Date: 20121019
  Transmission Date: 20130627
  Serious: Yes (Other)
  Sender: FDA-Public Use
  Company Number: US-BRISTOL-MYERS SQUIBB COMPANY-16702714

PATIENT
  Age: 61 Year
  Sex: Male
  Weight: 92 kg

DRUGS (3)
  1. YERVOY [Suspect]
     Indication: MALIGNANT MELANOMA
     Dosage: 278 mg,Lot#918609:Jun14;Lot#918360Exp Date:Jul14
No of doses 2
therapy dts 21Jun12,11Jul12
     Route: 042
     Dates: start: 20120531
  2. TRIAMCINOLONE [Concomitant]
     Dosage: Topical
     Route: 061
  3. DOXYCYCLINE [Concomitant]

REACTIONS (1)
  - Anaphylactic reaction [Recovered/Resolved]
